FAERS Safety Report 9412584 (Version 1)
Quarter: 2013Q2

REPORT INFORMATION
  Report Type: Spontaneous
  Country: BR (occurrence: BR)
  Receive Date: 20130624
  Receipt Date: 20130624
  Transmission Date: 20140414
  Serious: Yes (Other)
  Sender: FDA-Public Use
  Company Number: VAL_01131_2012

PATIENT
  Sex: Female

DRUGS (1)
  1. METHERGINE [Suspect]
     Indication: EXPOSURE DURING PREGNANCY
     Dosage: (DF)

REACTIONS (2)
  - Maternal exposure during pregnancy [None]
  - No adverse event [None]
